FAERS Safety Report 7343643-8 (Version None)
Quarter: 2011Q1

REPORT INFORMATION
  Report Type: 
  Country: None (occurrence: None)
  Receive Date: 20110310
  Receipt Date: 20100830
  Transmission Date: 20110831
  Serious: No
  Sender: FDA-Public Use
  Company Number: A0878311A

PATIENT
  Age: 69 Year
  Sex: Female

DRUGS (1)
  1. NICOTINE POLACRILEX [Suspect]

REACTIONS (6)
  - INTENTIONAL DRUG MISUSE [None]
  - GINGIVAL PAIN [None]
  - FACIAL PAIN [None]
  - STOMATITIS [None]
  - ORAL DISORDER [None]
  - ORAL DISCOMFORT [None]
